FAERS Safety Report 9349565 (Version 2)
Quarter: 2013Q2

REPORT INFORMATION
  Report Type: Spontaneous
  Country: JP (occurrence: JP)
  Receive Date: 20130614
  Receipt Date: 20130624
  Transmission Date: 20140414
  Serious: Yes (Other)
  Sender: FDA-Public Use
  Company Number: JP-GLAXOSMITHKLINE-B0898896A

PATIENT
  Sex: Female

DRUGS (1)
  1. SERETIDE (50MCG/250MCG) [Suspect]
     Indication: ASTHMA
     Dosage: 250MCG TWICE PER DAY
     Route: 055

REACTIONS (4)
  - Gastrointestinal candidiasis [Unknown]
  - Oesophageal candidiasis [Unknown]
  - Respiratory tract infection fungal [Unknown]
  - Respiratory moniliasis [Not Recovered/Not Resolved]
